FAERS Safety Report 4933039-8 (Version None)
Quarter: 2006Q1

REPORT INFORMATION
  Report Type: 
  Country: None (occurrence: None)
  Receive Date: 20060301
  Receipt Date: 20060301
  Transmission Date: 20060701
  Serious: Yes (Disabling)
  Sender: FDA-Public Use
  Company Number: None

PATIENT
  Age: 59 Year
  Sex: Female
  Weight: 54.4316 kg

DRUGS (2)
  1. ZICAM  3X [Suspect]
     Indication: NASOPHARYNGITIS
     Dates: start: 20051001, end: 20051101
  2. ZICAM  3X [Suspect]
     Indication: SINUSITIS
     Dates: start: 20051001, end: 20051101

REACTIONS (1)
  - ANOSMIA [None]
